FAERS Safety Report 7062601-4 (Version None)
Quarter: 2010Q4

REPORT INFORMATION
  Report Type: 
  Country: None (occurrence: None)
  Receive Date: 20101026
  Receipt Date: 20091202
  Transmission Date: 20110411
  Serious: No
  Sender: FDA-Public Use
  Company Number: US-PFIZER INC-2009284988

PATIENT
  Sex: Male
  Weight: 67.12 kg

DRUGS (5)
  1. LIPITOR [Suspect]
     Indication: BLOOD CHOLESTEROL INCREASED
     Dosage: 20 MG, 1X/DAY
     Route: 048
  2. NIASPAN [Concomitant]
     Dosage: 1000 MG, UNK
     Route: 048
  3. METOPROLOL [Concomitant]
     Dosage: UNK
     Route: 048
  4. RAMIPRIL [Concomitant]
     Dosage: UNK
     Route: 048
  5. TEMAZEPAM [Concomitant]
     Dosage: UNK
     Route: 048

REACTIONS (1)
  - THROMBOCYTOPENIA [None]
